FAERS Safety Report 12137187 (Version 1)
Quarter: 2016Q1

REPORT INFORMATION
  Report Type: Spontaneous
  Country: US (occurrence: US)
  Receive Date: 20160302
  Receipt Date: 20160302
  Transmission Date: 20160526
  Serious: Yes (Other)
  Sender: FDA-Public Use
  Company Number: US-TEVA-638168USA

PATIENT
  Age: 34 Year
  Sex: Female

DRUGS (1)
  1. ZECUITY [Suspect]
     Active Substance: SUMATRIPTAN SUCCINATE
     Route: 062
     Dates: start: 20160123, end: 20160123

REACTIONS (6)
  - Device battery issue [Unknown]
  - Application site erythema [Unknown]
  - Device leakage [Unknown]
  - Application site pruritus [Unknown]
  - Application site burn [Unknown]
  - Application site paraesthesia [Unknown]

NARRATIVE: CASE EVENT DATE: 20160123
